FAERS Safety Report 4739874-3 (Version None)
Quarter: 2005Q3

REPORT INFORMATION
  Report Type: 
  Country: None (occurrence: None)
  Receive Date: 20050805
  Receipt Date: 20050721
  Transmission Date: 20060218
  Serious: Yes (Death)
  Sender: FDA-Public Use
  Company Number: 2005S1007047

PATIENT
  Age: 54 Year
  Sex: Female

DRUGS (5)
  1. CLOZAPINE [Suspect]
     Indication: SCHIZOPHRENIA
     Dosage: 600 MG; HS; PO
     Route: 048
     Dates: start: 20040901, end: 20050601
  2. PAROXETINE [Concomitant]
  3. HYDROCHLORIDE [Concomitant]
  4. BENZATROPINE MESILATE [Concomitant]
  5. DOCUSATE SODIUM [Concomitant]

REACTIONS (1)
  - DEATH [None]
